FAERS Safety Report 5094172-6 (Version None)
Quarter: 2006Q3

REPORT INFORMATION
  Report Type: 
  Country: None (occurrence: None)
  Receive Date: 20060831
  Receipt Date: 20060821
  Transmission Date: 20061208
  Serious: Yes (Hospitalization)
  Sender: FDA-Public Use
  Company Number: 2006UW16606

PATIENT
  Age: 77 Year
  Sex: Female

DRUGS (10)
  1. PULMICORT [Suspect]
     Indication: ASTHMA
     Dosage: 2 INHALATIONS
     Route: 055
  2. SYMBICORT [Suspect]
     Indication: ASTHMA
     Route: 055
     Dates: start: 20050501
  3. BRICANYL [Concomitant]
     Indication: ASTHMA
  4. FOSAMAX [Concomitant]
     Indication: OSTEOPOROSIS
  5. PREDNISONE TAB [Concomitant]
  6. CALCIUM GLUCONATE [Concomitant]
  7. VITAMIN D [Concomitant]
  8. LIPITOR [Concomitant]
  9. BAYCOL [Concomitant]
  10. PREDNISONE TAB [Concomitant]
     Indication: EOSINOPHILIC PNEUMONIA

REACTIONS (4)
  - FRACTURE [None]
  - HAEMORRHAGE [None]
  - IMPAIRED HEALING [None]
  - MUSCLE SPASMS [None]
